FAERS Safety Report 4697108-2 (Version None)
Quarter: 2005Q2

REPORT INFORMATION
  Report Type: 
  Country: None (occurrence: None)
  Receive Date: 20050620
  Receipt Date: 20050606
  Transmission Date: 20051028
  Serious: No
  Sender: FDA-Public Use
  Company Number: B0383913A

PATIENT
  Age: 5 Year
  Sex: Male

DRUGS (13)
  1. ZOVIRAX [Suspect]
     Indication: DRUG USE FOR UNKNOWN INDICATION
     Dosage: 275 MG /THREE TIMES PER DAY/INTRAVENOUS
     Route: 042
  2. PHENYTOIN [Suspect]
     Indication: DRUG USE FOR UNKNOWN INDICATION
     Dosage: TWICE PER DAY/INTRAVENOUS
     Route: 042
  3. VALPROATE SODIUM [Suspect]
     Indication: DRUG USE FOR UNKNOWN INDICATION
     Dosage: 350 MG/INTRAVENOUS BOLUS
     Route: 040
  4. ZOVIRAX [Suspect]
     Indication: DRUG USE FOR UNKNOWN INDICATION
     Dosage: ORAL
     Route: 048
  5. VALPROATE SODIUM [Suspect]
     Indication: DRUG USE FOR UNKNOWN INDICATION
  6. VALPROATE SODIUM [Suspect]
     Indication: DRUG USE FOR UNKNOWN INDICATION
     Dosage: 175 MG/TWICE PER DAY/ORAL
     Route: 048
  7. PHENYTOIN [Suspect]
     Indication: DRUG USE FOR UNKNOWN INDICATION
     Dosage: ORAL
     Route: 048
  8. RIFAMPICIN [Suspect]
     Indication: DRUG USE FOR UNKNOWN INDICATION
  9. DEXAMETHASONE [Concomitant]
  10. PARACETAMOL [Concomitant]
  11. LYSINE ASPIRIN [Concomitant]
  12. ISONIAZID [Concomitant]
  13. PYRAZINAMIDE [Concomitant]

REACTIONS (3)
  - ANTICONVULSANT DRUG LEVEL DECREASED [None]
  - CONDITION AGGRAVATED [None]
  - CONVULSION [None]
